FAERS Safety Report 23160592 (Version 2)
Quarter: 2023Q4

REPORT INFORMATION
  Report Type: Report from Study
  Country: CA (occurrence: CA)
  Receive Date: 20231108
  Receipt Date: 20231211
  Transmission Date: 20240109
  Serious: Yes (Hospitalization)
  Sender: FDA-Public Use
  Company Number: CA-ALXN-A202312376AA

PATIENT
  Sex: Female

DRUGS (3)
  1. SOLIRIS [Suspect]
     Active Substance: ECULIZUMAB
     Indication: Haemolytic uraemic syndrome
     Dosage: 600 MG, QW
     Route: 042
     Dates: start: 20230920, end: 20230926
  2. SOLIRIS [Suspect]
     Active Substance: ECULIZUMAB
     Indication: Gastroenteritis Escherichia coli
  3. SOLIRIS [Suspect]
     Active Substance: ECULIZUMAB
     Indication: Off label use

REACTIONS (2)
  - Neurological symptom [Recovering/Resolving]
  - Off label use [Unknown]
